FAERS Safety Report 6808273-2 (Version None)
Quarter: 2010Q2

REPORT INFORMATION
  Report Type: 
  Country: None (occurrence: None)
  Receive Date: 20100629
  Receipt Date: 20090513
  Transmission Date: 20101027
  Serious: Yes (Other)
  Sender: FDA-Public Use
  Company Number: US-PFIZER INC-2009212470

PATIENT
  Age: 76 Year
  Sex: Male

DRUGS (1)
  1. METHYLPREDNISOLONE 16MG TAB [Suspect]

REACTIONS (1)
  - BONE DENSITY DECREASED [None]
